FAERS Safety Report 20010300 (Version 3)
Quarter: 2022Q4

REPORT INFORMATION
  Report Type: Report from Study
  Country: US (occurrence: US)
  Receive Date: 20211028
  Receipt Date: 20221121
  Transmission Date: 20230112
  Serious: Yes (Hospitalization, Other)
  Sender: FDA-Public Use
  Company Number: US-TAKEDA-2021TUS067024

PATIENT
  Age: 10 Year
  Sex: Male
  Weight: 24 kg

DRUGS (19)
  1. TEDUGLUTIDE [Suspect]
     Active Substance: TEDUGLUTIDE
     Indication: Short-bowel syndrome
     Dosage: 10 MILLIGRAM, QD
     Route: 042
     Dates: start: 20190814
  2. TEDUGLUTIDE [Suspect]
     Active Substance: TEDUGLUTIDE
     Indication: Short-bowel syndrome
     Dosage: 10 MILLIGRAM, QD
     Route: 042
     Dates: start: 20190814
  3. TEDUGLUTIDE [Suspect]
     Active Substance: TEDUGLUTIDE
     Indication: Short-bowel syndrome
     Dosage: 10 MILLIGRAM, QD
     Route: 042
     Dates: start: 20190814
  4. TEDUGLUTIDE [Suspect]
     Active Substance: TEDUGLUTIDE
     Indication: Short-bowel syndrome
     Dosage: 10 MILLIGRAM, QD
     Route: 042
     Dates: start: 20190814
  5. ROCEPHIN [Concomitant]
     Active Substance: CEFTRIAXONE SODIUM
     Indication: Overgrowth bacterial
     Dosage: UNK
     Route: 065
     Dates: start: 20210914
  6. ROCEPHIN [Concomitant]
     Active Substance: CEFTRIAXONE SODIUM
     Dosage: 200 MILLIGRAM, BID
     Route: 065
     Dates: start: 20210219
  7. RIFAXIMIN [Concomitant]
     Active Substance: RIFAXIMIN
     Indication: Overgrowth bacterial
     Dosage: 200 MILLIGRAM, BID
     Route: 065
     Dates: start: 20210219
  8. PERIACTIN [Concomitant]
     Active Substance: CYPROHEPTADINE HYDROCHLORIDE
     Indication: Product used for unknown indication
     Dosage: 5 MILLILITER, QD
     Route: 048
     Dates: start: 20210128, end: 20210227
  9. BACTRIM [Concomitant]
     Active Substance: SULFAMETHOXAZOLE\TRIMETHOPRIM
     Indication: Antibiotic prophylaxis
     Dosage: 6.80 MILLILITER, BID
     Dates: start: 20181016
  10. NEXIUM [Concomitant]
     Active Substance: ESOMEPRAZOLE MAGNESIUM
     Dosage: 10 MILLIGRAM, QD
     Route: 050
     Dates: start: 20200522
  11. CITRIC ACID, 1-STEARYL ESTER\SODIUM CITRATE [Concomitant]
     Active Substance: CITRIC ACID, 1-STEARYL ESTER\SODIUM CITRATE
     Dosage: 8 MILLILITER, TID
     Route: 050
     Dates: start: 20200702, end: 20200917
  12. CITRIC ACID, 1-STEARYL ESTER\SODIUM CITRATE [Concomitant]
     Active Substance: CITRIC ACID, 1-STEARYL ESTER\SODIUM CITRATE
     Dosage: 5 MILLILITER, TID
     Route: 050
     Dates: start: 20210128
  13. VITAMIN B12 [Concomitant]
     Active Substance: CYANOCOBALAMIN
     Indication: Vitamin B12 deficiency
     Dosage: 1000 MICROGRAM
     Route: 060
     Dates: start: 20200706, end: 20211213
  14. VITAMIN B12 [Concomitant]
     Active Substance: CYANOCOBALAMIN
     Dosage: 1000 MICROGRAM
     Route: 060
     Dates: start: 20210129, end: 20211214
  15. VITAMIN B12 [Concomitant]
     Active Substance: CYANOCOBALAMIN
     Dosage: 1000 MICROGRAM
     Route: 060
     Dates: start: 20211214
  16. MORPHINE [Concomitant]
     Active Substance: MORPHINE
     Indication: Pain
     Dosage: 0.6 MILLIGRAM
     Route: 042
     Dates: start: 20211021, end: 20211021
  17. BUPIVACAINE [Concomitant]
     Active Substance: BUPIVACAINE
     Indication: Procedural failure
     Dosage: 5 MILLILITER
     Dates: start: 20211021, end: 20211021
  18. LANSOPRAZOLE [Concomitant]
     Active Substance: LANSOPRAZOLE
     Dosage: 15 MILLILITER, QD
     Route: 048
     Dates: start: 20220111, end: 20220111
  19. METRONIDAZOLE [Concomitant]
     Active Substance: METRONIDAZOLE
     Indication: Abdominal infection
     Dosage: 125 MILLIGRAM, TID
     Route: 048
     Dates: start: 20220111, end: 20220111

REACTIONS (1)
  - COVID-19 [Recovered/Resolved]

NARRATIVE: CASE EVENT DATE: 20210914
